FAERS Safety Report 7159142-2 (Version None)
Quarter: 2010Q4

REPORT INFORMATION
  Report Type: 
  Country: None (occurrence: None)
  Receive Date: 20101214
  Receipt Date: 20101207
  Transmission Date: 20110411
  Serious: Yes (Hospitalization, Other)
  Sender: FDA-Public Use
  Company Number: US-PFIZER INC-2010152735

PATIENT
  Sex: Female

DRUGS (11)
  1. CHANTIX [Suspect]
     Dosage: UNK
     Route: 048
  2. GABAPENTIN [Concomitant]
     Indication: CONVULSION
     Dosage: UNK
  3. KLONOPIN [Concomitant]
     Indication: CONVULSION
     Dosage: UNK
  4. LYRICA [Concomitant]
     Indication: CONVULSION
     Dosage: 50 MG, 3X/DAY
  5. LYRICA [Concomitant]
     Indication: FIBROMYALGIA
  6. SAVELLA [Concomitant]
     Dosage: UNK
  7. CYMBALTA [Concomitant]
     Dosage: 60 MG, 2X/DAY
  8. ABILIFY [Concomitant]
     Dosage: 2 MG, 2X/DAY
  9. BACLOFEN [Concomitant]
     Dosage: 10MG TWICE DAILY AS NEEDED
  10. SINGULAIR [Concomitant]
     Dosage: 10 MG DAILY
  11. LOVASTATIN [Concomitant]
     Dosage: 20 MG DAILY

REACTIONS (11)
  - AGITATION [None]
  - BLOOD IMMUNOGLOBULIN G DECREASED [None]
  - CONVULSION [None]
  - ELECTROENCEPHALOGRAM ABNORMAL [None]
  - EPISTAXIS [None]
  - FALL [None]
  - HALLUCINATION [None]
  - IMMUNODEFICIENCY [None]
  - MEMORY IMPAIRMENT [None]
  - PNEUMONIA [None]
  - WHITE BLOOD CELL COUNT INCREASED [None]
